FAERS Safety Report 21788590 (Version 2)
Quarter: 2023Q1

REPORT INFORMATION
  Report Type: Spontaneous
  Country: BR (occurrence: BR)
  Receive Date: 20221228
  Receipt Date: 20230222
  Transmission Date: 20230417
  Serious: No
  Sender: FDA-Public Use
  Company Number: BR-BECTON DICKINSON-BR-BD-22-000488

PATIENT

DRUGS (1)
  1. CHLORAPREP [Suspect]
     Active Substance: CHLORHEXIDINE GLUCONATE\ISOPROPYL ALCOHOL
     Indication: Product used for unknown indication
     Dosage: N/A
     Route: 065

REACTIONS (1)
  - Product deposit [Unknown]

NARRATIVE: CASE EVENT DATE: 20220926
